FAERS Safety Report 5318635-0 (Version None)
Quarter: 2007Q2

REPORT INFORMATION
  Report Type: 
  Country: None (occurrence: None)
  Receive Date: 20070508
  Receipt Date: 20070427
  Transmission Date: 20071010
  Serious: Yes (Hospitalization)
  Sender: FDA-Public Use
  Company Number: PHEH2007US04833

PATIENT
  Age: 53 Year
  Sex: Female

DRUGS (1)
  1. ZELNORM [Suspect]
     Indication: CONSTIPATION
     Dosage: 6 MG, TID
     Dates: start: 20060401, end: 20070410

REACTIONS (5)
  - CONSTIPATION [None]
  - HEART RATE DECREASED [None]
  - HYPOTENSION [None]
  - INTESTINAL OBSTRUCTION [None]
  - VOMITING [None]
